FAERS Safety Report 7267244-5 (Version None)
Quarter: 2011Q1

REPORT INFORMATION
  Report Type: 
  Country: None (occurrence: None)
  Receive Date: 20110201
  Receipt Date: 20110128
  Transmission Date: 20110831
  Serious: Yes (Life-Threatening)
  Sender: FDA-Public Use
  Company Number: FR-SANOFI-AVENTIS-2011SA005676

PATIENT
  Age: 55 Year
  Sex: Male

DRUGS (13)
  1. AUGMENTIN '125' [Suspect]
     Indication: INFECTION
     Route: 042
     Dates: start: 20101229, end: 20101231
  2. JANUVIA [Suspect]
     Route: 048
     Dates: start: 20101222, end: 20110102
  3. NOVONORM [Suspect]
     Route: 048
     Dates: start: 20101222, end: 20110102
  4. XANAX [Suspect]
     Route: 048
     Dates: start: 20101222, end: 20110105
  5. ALFUZOSIN HCL [Suspect]
     Route: 048
     Dates: start: 20101222, end: 20110104
  6. LASIX [Concomitant]
     Route: 065
  7. INSULIN DETEMIR [Concomitant]
     Route: 065
  8. OFLOCET [Suspect]
     Indication: INFECTION
     Dosage: DOSE:5 MILLIGRAM(S)/MILLILITRE
     Route: 042
     Dates: start: 20101229, end: 20101231
  9. DEPAMIDE [Suspect]
     Route: 048
     Dates: start: 20101222, end: 20110106
  10. ATARAX [Suspect]
     Route: 048
     Dates: start: 20101222, end: 20110101
  11. TAHOR [Concomitant]
     Route: 065
  12. LOVENOX [Suspect]
     Route: 058
     Dates: start: 20100901, end: 20110103
  13. INIPOMP [Concomitant]
     Route: 065

REACTIONS (1)
  - THROMBOCYTOPENIA [None]
